FAERS Safety Report 7864657-5 (Version None)
Quarter: 2011Q4

REPORT INFORMATION
  Report Type: 
  Country: None (occurrence: None)
  Receive Date: 20111025
  Receipt Date: 20111013
  Transmission Date: 20120403
  Serious: Yes (Other)
  Sender: FDA-Public Use
  Company Number: 1000022460

PATIENT
  Age: 83 Year
  Sex: Female

DRUGS (10)
  1. YOKU-KAN-SAN (HERBAL EXTRACTS NOS) (HERBAL EXTRACT NOS) [Concomitant]
  2. THYRADIN (LEVOTHYROXINE) (LEVOTHYROXINE) [Concomitant]
  3. MEMANTINE [Suspect]
     Indication: DEMENTIA ALZHEIMER'S TYPE
     Dosage: 5 MG (5 MG,1 IN 1 D),ORAL ; 10 MG (10 MG,1 IN 1 D),ORAL
     Route: 048
     Dates: start: 20110618, end: 20110624
  4. MEMANTINE [Suspect]
     Indication: DEMENTIA ALZHEIMER'S TYPE
     Dosage: 5 MG (5 MG,1 IN 1 D),ORAL ; 10 MG (10 MG,1 IN 1 D),ORAL
     Route: 048
     Dates: start: 20110611, end: 20110617
  5. MEMANTINE [Suspect]
     Indication: DEMENTIA ALZHEIMER'S TYPE
     Dosage: 15 MG (15 MG,1 IN 1 D),ORAL
     Route: 048
     Dates: start: 20110625, end: 20110711
  6. ARICEPT [Concomitant]
  7. BENIDIPINE(BENIDIPINE) (BENIDIPINE) [Concomitant]
  8. AMLODIPINE [Concomitant]
  9. EVISTA [Concomitant]
  10. LIPITOR [Concomitant]

REACTIONS (4)
  - MALAISE [None]
  - UNEVALUABLE EVENT [None]
  - ALTERED STATE OF CONSCIOUSNESS [None]
  - SOMNOLENCE [None]
